FAERS Safety Report 15739514 (Version 1)
Quarter: 2018Q4

REPORT INFORMATION
  Report Type: Spontaneous
  Country: US (occurrence: US)
  Receive Date: 20181219
  Receipt Date: 20181219
  Transmission Date: 20190205
  Serious: No
  Sender: FDA-Public Use
  Company Number: US-ALLERGAN-1827359US

PATIENT
  Age: 67 Year
  Sex: Female

DRUGS (1)
  1. BYSTOLIC [Suspect]
     Active Substance: NEBIVOLOL HYDROCHLORIDE
     Indication: HYPERTENSION
     Dosage: 5 MG, UNK
     Route: 048
     Dates: start: 20180511, end: 20180517

REACTIONS (9)
  - Lip swelling [Not Recovered/Not Resolved]
  - Oral mucosal erythema [Recovering/Resolving]
  - Mouth swelling [Recovering/Resolving]
  - Hypersensitivity [Unknown]
  - Eye pruritus [Recovered/Resolved]
  - Pruritus [Not Recovered/Not Resolved]
  - Nasal congestion [Recovered/Resolved]
  - Oral pain [Not Recovered/Not Resolved]
  - Tongue erythema [Recovering/Resolving]

NARRATIVE: CASE EVENT DATE: 201805
